FAERS Safety Report 5123714-7 (Version None)
Quarter: 2006Q4

REPORT INFORMATION
  Report Type: 
  Country: None (occurrence: None)
  Receive Date: 20061010
  Receipt Date: 20060620
  Transmission Date: 20070319
  Serious: Yes (Other)
  Sender: FDA-Public Use
  Company Number: PHBS2006JP09295

PATIENT
  Age: 52 Year
  Sex: Male
  Weight: 90 kg

DRUGS (5)
  1. PARLODEL [Suspect]
     Indication: ACROMEGALY
     Dosage: 5 MG/DAY
     Route: 048
     Dates: start: 20060223
  2. CARNACULIN [Concomitant]
     Indication: HYPERTENSION
     Dosage: 0.5 DF, UNK
     Route: 048
     Dates: start: 20060802
  3. AMLODIN [Concomitant]
     Indication: HYPERTENSION
     Dosage: 1 DF, UNK
     Route: 048
     Dates: start: 20060802
  4. OLMESARTAN MEDOXOMIL [Concomitant]
     Indication: HYPERTENSION
     Dosage: 2 DF, UNK
     Route: 048
     Dates: start: 20060830
  5. NATRIX [Concomitant]
     Indication: HYPERTENSION
     Dosage: 1 DF, UNK
     Route: 048
     Dates: start: 20060318

REACTIONS (5)
  - ALANINE AMINOTRANSFERASE INCREASED [None]
  - BLOOD GROWTH HORMONE INCREASED [None]
  - BLOOD THYROID STIMULATING HORMONE DECREASED [None]
  - THYROIDITIS SUBACUTE [None]
  - TRI-IODOTHYRONINE INCREASED [None]
